FAERS Safety Report 6081207-7 (Version None)
Quarter: 2009Q1

REPORT INFORMATION
  Report Type: 
  Country: None (occurrence: None)
  Receive Date: 20090213
  Receipt Date: 20090206
  Transmission Date: 20090719
  Serious: Yes (Hospitalization, Other)
  Sender: FDA-Public Use
  Company Number: US025433

PATIENT
  Sex: Male

DRUGS (3)
  1. TREANDA [Suspect]
     Indication: LYMPHOMA
     Dosage: 120 MG/M2 CYCLE 1 QD INTRAVENOUS
     Route: 042
  2. TREANDA [Suspect]
     Indication: LYMPHOMA
     Dosage: 120 MG/M2 CYCLE 2 QD INTRAVENOUS
     Route: 042
     Dates: start: 20090203
  3. BENADRYL [Concomitant]

REACTIONS (6)
  - BLOOD GLUCOSE INCREASED [None]
  - BLOOD PRESSURE DECREASED [None]
  - CHILLS [None]
  - HYPOCALCAEMIA [None]
  - LOSS OF CONSCIOUSNESS [None]
  - RENAL FAILURE [None]
